FAERS Safety Report 4688979-4 (Version None)
Quarter: 2005Q2

REPORT INFORMATION
  Report Type: 
  Country: None (occurrence: None)
  Receive Date: 20050613
  Receipt Date: 20050601
  Transmission Date: 20051028
  Serious: Yes (Hospitalization)
  Sender: FDA-Public Use
  Company Number: US-ROCHE-406629

PATIENT
  Age: 17 Year
  Sex: Male
  Weight: 77.1 kg

DRUGS (3)
  1. ACCUTANE [Suspect]
     Indication: ACNE
     Route: 048
     Dates: start: 20040815, end: 20050215
  2. STEROID [Suspect]
     Indication: DRUG USE FOR UNKNOWN INDICATION
     Dosage: DRUG STATED AS NON-PRESCRIBED STEROIDS. 2-3 CYCLES PRIOR TO TREATMENT WITH ISOTRETINOIN.
     Route: 065
  3. STEROID [Suspect]
     Dosage: DRUG STATED AS NON-PRESCRIBED STEROIDS. 4 ADDITIONAL CYCLES.
     Route: 065
     Dates: start: 20050406, end: 20050418

REACTIONS (9)
  - ABNORMAL BEHAVIOUR [None]
  - ANXIETY [None]
  - DEPRESSION [None]
  - EPISTAXIS [None]
  - HYPERTENSION [None]
  - INSOMNIA [None]
  - PARANOIA [None]
  - PSYCHOTIC DISORDER [None]
  - THINKING ABNORMAL [None]
